FAERS Safety Report 4921243-4 (Version None)
Quarter: 2006Q1

REPORT INFORMATION
  Report Type: 
  Country: None (occurrence: None)
  Receive Date: 20060222
  Receipt Date: 20060222
  Transmission Date: 20060701
  Serious: Yes (Hospitalization)
  Sender: FDA-Public Use
  Company Number: None

PATIENT
  Sex: Female

DRUGS (9)
  1. HYDROCHLOROTHIAZIDE [Suspect]
     Indication: HYPERTENSION
     Dosage: 25 MG DAILY PO
     Route: 048
  2. ALENDRONATE SODIUM [Concomitant]
  3. BUPROPION HCL [Concomitant]
  4. CALCIUM CARBONATE [Concomitant]
  5. DOCUSATE [Concomitant]
  6. LISINOPRIL [Concomitant]
  7. RISPERIDONE [Concomitant]
  8. SIMVASTATIN [Concomitant]
  9. VITAMIN D [Concomitant]

REACTIONS (2)
  - HYPOVOLAEMIA [None]
  - SYNCOPE [None]
